FAERS Safety Report 22318545 (Version 1)
Quarter: 2023Q2

REPORT INFORMATION
  Report Type: Report from Study
  Country: US (occurrence: US)
  Receive Date: 20230515
  Receipt Date: 20230515
  Transmission Date: 20230721
  Serious: Yes (Other)
  Sender: FDA-Public Use
  Company Number: US-BIOGEN-2021BI00991197

PATIENT
  Sex: Female

DRUGS (17)
  1. VUMERITY [Suspect]
     Active Substance: DIROXIMEL FUMARATE
     Indication: Multiple sclerosis
     Dosage: MAINTENANCE DOSE
     Route: 050
     Dates: start: 20210112
  2. VUMERITY [Suspect]
     Active Substance: DIROXIMEL FUMARATE
     Route: 050
  3. VUMERITY [Suspect]
     Active Substance: DIROXIMEL FUMARATE
     Route: 050
  4. ASPIRIN [Suspect]
     Active Substance: ASPIRIN
     Indication: Product used for unknown indication
     Route: 050
  5. ROPINIROLE HYDROCHLORIDE [Concomitant]
     Active Substance: ROPINIROLE HYDROCHLORIDE
     Indication: Product used for unknown indication
     Route: 050
  6. CRESTOR [Concomitant]
     Active Substance: ROSUVASTATIN CALCIUM
     Indication: Product used for unknown indication
     Route: 050
  7. MAGNESIUM PHOSPHATE [Concomitant]
     Active Substance: MAGNESIUM PHOSPHATE, TRIBASIC, PENTAHYDRATE
     Indication: Product used for unknown indication
     Dosage: DIBAS
     Route: 050
  8. ACETAMINOPHEN\HYDROCODONE [Concomitant]
     Active Substance: ACETAMINOPHEN\HYDROCODONE
     Indication: Product used for unknown indication
     Route: 050
  9. GABAPENTIN [Concomitant]
     Active Substance: GABAPENTIN
     Indication: Product used for unknown indication
     Route: 050
  10. AMLODIPINE BESYLATE [Concomitant]
     Active Substance: AMLODIPINE BESYLATE
     Indication: Product used for unknown indication
     Route: 050
  11. HYDROCHLOROTHIAZIDE [Concomitant]
     Active Substance: HYDROCHLOROTHIAZIDE
     Indication: Product used for unknown indication
     Route: 050
  12. SERTRALINE HYDROCHLORIDE [Concomitant]
     Active Substance: SERTRALINE HYDROCHLORIDE
     Indication: Product used for unknown indication
     Route: 050
  13. PREGABALIN [Concomitant]
     Active Substance: PREGABALIN
     Indication: Product used for unknown indication
     Route: 050
  14. LORATADINE [Concomitant]
     Active Substance: LORATADINE
     Indication: Product used for unknown indication
     Route: 050
  15. VITAMIN D3 [Concomitant]
     Active Substance: CHOLECALCIFEROL
     Indication: Product used for unknown indication
     Route: 050
  16. MINERALS\VITAMINS [Concomitant]
     Active Substance: MINERALS\VITAMINS
     Indication: Product used for unknown indication
     Route: 050
  17. FISH OIL [Concomitant]
     Active Substance: FISH OIL
     Indication: Product used for unknown indication
     Route: 050

REACTIONS (10)
  - Gastric haemorrhage [Unknown]
  - Product dose omission in error [Unknown]
  - Hypersomnia [Unknown]
  - Fatigue [Unknown]
  - Multiple sclerosis [Unknown]
  - Rash papular [Unknown]
  - Flushing [Not Recovered/Not Resolved]
  - Dyspepsia [Not Recovered/Not Resolved]
  - Pruritus [Unknown]
  - Hot flush [Unknown]
